FAERS Safety Report 5522388-0 (Version None)
Quarter: 2007Q4

REPORT INFORMATION
  Report Type: 
  Country: None (occurrence: None)
  Receive Date: 20071120
  Receipt Date: 20071112
  Transmission Date: 20080405
  Serious: Yes (Death, Hospitalization)
  Sender: FDA-Public Use
  Company Number: US-GENENTECH-250434

PATIENT
  Sex: Female

DRUGS (6)
  1. BEVACIZUMAB [Suspect]
     Indication: BREAST CANCER METASTATIC
     Dosage: 15 MG, Q3W
     Route: 042
     Dates: start: 20060831
  2. GEMCITABINE [Suspect]
     Indication: BREAST CANCER METASTATIC
     Dosage: 1250 MG/M2, UNK
     Dates: start: 20060831
  3. REGLAN [Concomitant]
     Indication: NAUSEA
  4. REGLAN [Concomitant]
     Indication: VOMITING
  5. ZOFRAN [Concomitant]
     Indication: NAUSEA
  6. ZOFRAN [Concomitant]
     Indication: VOMITING

REACTIONS (1)
  - BREAST CANCER METASTATIC [None]
